FAERS Safety Report 5706357-3 (Version None)
Quarter: 2008Q2

REPORT INFORMATION
  Report Type: 
  Country: None (occurrence: None)
  Receive Date: 20080414
  Receipt Date: 20080407
  Transmission Date: 20081010
  Serious: Yes (Other)
  Sender: FDA-Public Use
  Company Number: CHPA2008US06223

PATIENT
  Age: 14 Year
  Sex: Male

DRUGS (1)
  1. BUCKLEY'S MIXTURE  (USA)(DEXTROMETHORPHAN HYDROBROMIDE) SYRUP [Suspect]
     Indication: COUGH
     Dosage: 1 TSP, BID, ORAL
     Route: 048
     Dates: start: 20080404, end: 20080407

REACTIONS (1)
  - AGEUSIA [None]
